FAERS Safety Report 10091725 (Version 1)
Quarter: 2014Q2

REPORT INFORMATION
  Report Type: Spontaneous
  Country: US (occurrence: US)
  Receive Date: 20140421
  Receipt Date: 20140421
  Transmission Date: 20141212
  Serious: Yes (Other)
  Sender: FDA-Public Use
  Company Number: US-PURDUE-USA-2002-0001638

PATIENT
  Age: 51 Year
  Sex: Female

DRUGS (2)
  1. OXYFAST CONCENTRATE 20 MG/ML [Suspect]
     Indication: PRODUCT USED FOR UNKNOWN INDICATION
     Dosage: UNK ML, UNK
     Route: 065
  2. UNKNOWN [Concomitant]

REACTIONS (1)
  - Drug abuse [Unknown]
